FAERS Safety Report 6156571-0 (Version None)
Quarter: 2009Q2

REPORT INFORMATION
  Report Type: 
  Country: None (occurrence: None)
  Receive Date: 20090413
  Receipt Date: 20090128
  Transmission Date: 20091009
  Serious: Yes (Death, Other)
  Sender: FDA-Public Use
  Company Number: OPER20090019

PATIENT
  Age: 53 Year
  Sex: Male

DRUGS (2)
  1. OPANA ER [Suspect]
     Dates: end: 20090101
  2. OPANA [Suspect]
     Dates: end: 20090101

REACTIONS (2)
  - DRUG TOXICITY [None]
  - OVERDOSE [None]
